FAERS Safety Report 4490586-3 (Version None)
Quarter: 2004Q4

REPORT INFORMATION
  Report Type: 
  Country: None (occurrence: None)
  Receive Date: 20041027
  Receipt Date: 20041012
  Transmission Date: 20050328
  Serious: Yes (Hospitalization)
  Sender: FDA-Public Use
  Company Number: 9023

PATIENT
  Age: 74 Year
  Sex: Male

DRUGS (9)
  1. AMIODARONE [Suspect]
     Indication: ATRIAL FIBRILLATION
     Dosage: 200 MG, PO
     Route: 048
     Dates: start: 20040716, end: 20040915
  2. SPIRONOLACTONE [Suspect]
     Indication: CARDIAC FAILURE
     Dosage: 25 MG MANE, PO
     Route: 048
     Dates: start: 20040816, end: 20040915
  3. DIGOXIN [Suspect]
     Indication: ATRIAL FIBRILLATION
     Dosage: 250 MICROGRAM, PO
     Route: 048
     Dates: start: 20040716, end: 20040915
  4. RAMIPRIL [Suspect]
     Indication: CARDIAC FAILURE
     Dosage: 5 MG BID; PO
     Route: 048
     Dates: start: 20040716, end: 20040915
  5. BUMETANIDE [Concomitant]
  6. GLICLAZIDE [Concomitant]
  7. METFORMIN [Concomitant]
  8. ATORVASTATIN CALCIUM [Concomitant]
  9. WARFARIN SODIUM [Concomitant]

REACTIONS (2)
  - BLOOD POTASSIUM INCREASED [None]
  - HEART RATE INCREASED [None]
